FAERS Safety Report 9419019 (Version 1)
Quarter: 2013Q3

REPORT INFORMATION
  Report Type: Report from Study
  Country: IR (occurrence: IR)
  Receive Date: 20130725
  Receipt Date: 20130725
  Transmission Date: 20140515
  Serious: Yes (Other)
  Sender: FDA-Public Use
  Company Number: IR-ROCHE-1253167

PATIENT
  Age: 10 Year
  Sex: Male

DRUGS (2)
  1. RITUXIMAB [Suspect]
     Indication: PEMPHIGUS
     Route: 042
  2. PREDNISOLONE [Concomitant]
     Dosage: THE LATEST ADMINISTERED DOSE BEFORE THE STUDY. PREDNISOLONE DOSE WAS GRADUALLY TAPERED BY 30% (AT DO
     Route: 048

REACTIONS (1)
  - Cavernous sinus thrombosis [Recovered/Resolved]
